FAERS Safety Report 10861020 (Version 2)
Quarter: 2015Q1

REPORT INFORMATION
  Report Type: Spontaneous
  Country: JP (occurrence: JP)
  Receive Date: 20150224
  Receipt Date: 20150304
  Transmission Date: 20150721
  Serious: Yes (Death)
  Sender: FDA-Public Use
  Company Number: JP-ROCHE-1541768

PATIENT
  Age: 39 Year
  Sex: Female

DRUGS (9)
  1. RIVOTRIL [Suspect]
     Active Substance: CLONAZEPAM
     Indication: BIPOLAR DISORDER
     Route: 048
     Dates: start: 20111205, end: 20130521
  2. RISPERDAL [Suspect]
     Active Substance: RISPERIDONE
     Indication: BIPOLAR DISORDER
     Route: 048
     Dates: start: 20121026, end: 20130521
  3. RISPERDAL [Suspect]
     Active Substance: RISPERIDONE
     Indication: BIPOLAR DISORDER
     Route: 048
     Dates: start: 20111219, end: 20130521
  4. SELENICA-R [Suspect]
     Active Substance: SELENIUM
     Indication: BIPOLAR DISORDER
     Route: 048
     Dates: start: 20130215, end: 20130521
  5. REFLEX [Suspect]
     Active Substance: MIRTAZAPINE
     Indication: BIPOLAR DISORDER
     Route: 048
     Dates: start: 20120525, end: 20130521
  6. DOGMATYL [Suspect]
     Active Substance: SULPIRIDE
     Indication: BIPOLAR DISORDER
     Route: 048
     Dates: start: 20121112, end: 20130521
  7. HIRNAMIN [Suspect]
     Active Substance: PHENOTHIAZINE
     Indication: BIPOLAR DISORDER
     Route: 048
     Dates: start: 20121029, end: 20130521
  8. DEPROMEL [Suspect]
     Active Substance: FLUVOXAMINE
     Indication: BIPOLAR DISORDER
     Route: 048
     Dates: start: 20121102, end: 20130521
  9. DESYREL [Suspect]
     Active Substance: TRAZODONE HYDROCHLORIDE
     Indication: BIPOLAR DISORDER
     Route: 048
     Dates: start: 20121221, end: 20130521

REACTIONS (6)
  - Aspiration [Fatal]
  - Asphyxia [Fatal]
  - Dizziness [Unknown]
  - Dysphagia [Fatal]
  - Drooling [Unknown]
  - Off label use [Unknown]

NARRATIVE: CASE EVENT DATE: 201302
